FAERS Safety Report 12499534 (Version 1)
Quarter: 2016Q2

REPORT INFORMATION
  Report Type: Report from Study
  Country: US (occurrence: US)
  Receive Date: 20160627
  Receipt Date: 20160627
  Transmission Date: 20160815
  Serious: Yes (Hospitalization, Other)
  Sender: FDA-Public Use
  Company Number: US-AMGEN-USASL2016078493

PATIENT
  Age: 85 Year
  Sex: Female

DRUGS (1)
  1. REPATHA [Suspect]
     Active Substance: EVOLOCUMAB
     Indication: BLOOD CHOLESTEROL INCREASED
     Dosage: 140 MG/ML, Q2WK
     Route: 065
     Dates: start: 201510

REACTIONS (9)
  - Drug administered at inappropriate site [Unknown]
  - Hospitalisation [Unknown]
  - Unevaluable event [Unknown]
  - Underdose [Unknown]
  - Dehydration [Unknown]
  - Cerebral disorder [Unknown]
  - Injury associated with device [Unknown]
  - Adverse event [Unknown]
  - Speech disorder [Unknown]

NARRATIVE: CASE EVENT DATE: 201604
